FAERS Safety Report 12788988 (Version 6)
Quarter: 2017Q2

REPORT INFORMATION
  Report Type: Spontaneous
  Country: US (occurrence: US)
  Receive Date: 20160928
  Receipt Date: 20170630
  Transmission Date: 20170830
  Serious: No
  Sender: FDA-Public Use
  Company Number: US-PFIZER INC-2016451658

PATIENT
  Age: 52 Year
  Sex: Female

DRUGS (3)
  1. XALKORI [Concomitant]
     Active Substance: CRIZOTINIB
     Dosage: UNK
     Dates: start: 20160719
  2. XELJANZ [Suspect]
     Active Substance: TOFACITINIB CITRATE
     Indication: RHEUMATOID ARTHRITIS
     Dosage: 5 MG, 1X/DAY (FOR 2 WEEKS)
     Route: 048
     Dates: start: 20160719
  3. XELJANZ [Suspect]
     Active Substance: TOFACITINIB CITRATE
     Dosage: 5 MG, 2X/DAY
     Route: 048
     Dates: start: 20160927

REACTIONS (7)
  - Drug ineffective [Not Recovered/Not Resolved]
  - Medication error [Recovered/Resolved]
  - Hypersomnia [Not Recovered/Not Resolved]
  - Skin lesion [Not Recovered/Not Resolved]
  - Intentional product misuse [Recovered/Resolved]
  - Headache [Unknown]
  - Constipation [Unknown]

NARRATIVE: CASE EVENT DATE: 20160719
